FAERS Safety Report 9144659 (Version 1)
Quarter: 2013Q1

REPORT INFORMATION
  Report Type: Report from Study
  Country: FR (occurrence: FR)
  Receive Date: 20130306
  Receipt Date: 20130306
  Transmission Date: 20140127
  Serious: Yes (Hospitalization)
  Sender: FDA-Public Use
  Company Number: FR-ROCHE-1176914

PATIENT
  Age: 50 Year
  Sex: Female
  Weight: 94 kg

DRUGS (8)
  1. RITUXIMAB [Suspect]
     Indication: CHRONIC LYMPHOCYTIC LEUKAEMIA
     Route: 041
     Dates: start: 20121113, end: 20121113
  2. RITUXIMAB [Suspect]
     Route: 041
     Dates: start: 20121218
  3. CYCLOPHOSPHAMIDE [Suspect]
     Indication: CHRONIC LYMPHOCYTIC LEUKAEMIA
     Route: 048
     Dates: start: 20121114, end: 20121116
  4. CYCLOPHOSPHAMIDE [Suspect]
     Route: 048
     Dates: start: 20121218
  5. FLUDARABINE [Suspect]
     Indication: CHRONIC LYMPHOCYTIC LEUKAEMIA
     Route: 048
     Dates: start: 20121114, end: 20121116
  6. FLUDARABINE [Suspect]
     Route: 048
     Dates: start: 20121218
  7. SULFAMETHOXAZOLE/TRIMETHOPRIM [Suspect]
     Indication: CHRONIC LYMPHOCYTIC LEUKAEMIA
     Dosage: 400 MG/D
     Route: 048
     Dates: start: 20111116, end: 20121201
  8. VALACICLOVIR HYDROCHLORIDE [Suspect]
     Indication: CHRONIC LYMPHOCYTIC LEUKAEMIA
     Dosage: 500 MG/D
     Route: 048
     Dates: start: 20111116, end: 20121218

REACTIONS (2)
  - Febrile bone marrow aplasia [Recovered/Resolved with Sequelae]
  - Rash maculo-papular [Not Recovered/Not Resolved]
